FAERS Safety Report 5326241-7 (Version None)
Quarter: 2007Q2

REPORT INFORMATION
  Report Type: 
  Country: None (occurrence: None)
  Receive Date: 20070509
  Receipt Date: 20070425
  Transmission Date: 20071010
  Serious: Yes (Other)
  Sender: FDA-Public Use
  Company Number: B0469245A

PATIENT
  Sex: Female

DRUGS (4)
  1. LAMIVUDINE TABLET (GENERIC) [Suspect]
     Indication: SYSTEMIC ANTIVIRAL TREATMENT
  2. STAVUDINE [Suspect]
     Indication: SYSTEMIC ANTIVIRAL TREATMENT
  3. LOPINAVIR (FORMULATION UNKNOWN) (LOPINAVIR) [Suspect]
     Indication: SYSTEMIC ANTIVIRAL TREATMENT
  4. RITONAVIR (FORMULATION UNKNOWN) (RITONAVIR) [Suspect]

REACTIONS (3)
  - IMMUNE RECONSTITUTION SYNDROME [None]
  - NO THERAPEUTIC RESPONSE [None]
  - RASH [None]
